FAERS Safety Report 13534876 (Version 1)
Quarter: 2017Q2

REPORT INFORMATION
  Report Type: Spontaneous
  Country: DE (occurrence: DE)
  Receive Date: 20170511
  Receipt Date: 20170511
  Transmission Date: 20170830
  Serious: Yes (Other)
  Sender: FDA-Public Use
  Company Number: DE-JNJFOC-20170503366

PATIENT
  Sex: Female

DRUGS (2)
  1. REGAINE FRAUEN SOLUTION [Suspect]
     Active Substance: MINOXIDIL
     Indication: ALOPECIA
     Route: 061
  2. REGAINE FRAUEN SOLUTION [Suspect]
     Active Substance: MINOXIDIL
     Route: 061

REACTIONS (5)
  - Product use in unapproved indication [Unknown]
  - Off label use [Unknown]
  - Thrombosis [Unknown]
  - Therapeutic response unexpected [Unknown]
  - Neoplasm malignant [Unknown]
